FAERS Safety Report 23295837 (Version 1)
Quarter: 2023Q4

REPORT INFORMATION
  Report Type: Spontaneous
  Country: FR (occurrence: FR)
  Receive Date: 20231214
  Receipt Date: 20231214
  Transmission Date: 20240109
  Serious: Yes (Other)
  Sender: FDA-Public Use
  Company Number: FR-AFSSAPS-AN20201274

PATIENT
  Age: 42 Year
  Sex: Male
  Weight: 65 kg

DRUGS (14)
  1. AKYNZEO (NETUPITANT\PALONOSETRON) [Suspect]
     Active Substance: NETUPITANT\PALONOSETRON
     Indication: Prophylaxis of nausea and vomiting
     Dosage: 1 DF, QD (300 MG/0.5 MG, G?LULE)
     Route: 048
     Dates: start: 20200403
  2. CARBOPLATIN [Suspect]
     Active Substance: CARBOPLATIN
     Indication: Bronchial carcinoma
     Dosage: UNK (INCONNUE)
     Route: 042
     Dates: start: 20200403, end: 20200515
  3. CARBOPLATIN [Suspect]
     Active Substance: CARBOPLATIN
     Dosage: UNK (INCONNUE)
     Route: 042
     Dates: start: 20200403, end: 20200515
  4. CYAMEMAZINE [Suspect]
     Active Substance: CYAMEMAZINE
     Indication: Mental disorder
     Dosage: UNK (INCONNUE)
     Route: 048
  5. FOLIC ACID [Suspect]
     Active Substance: FOLIC ACID
     Indication: Vitamin supplementation
     Dosage: UNK (INCONNUE)
     Route: 048
  6. INDACATEROL [Suspect]
     Active Substance: INDACATEROL
     Indication: Chronic obstructive pulmonary disease
     Dosage: UNK (INCONNUE)
     Route: 055
  7. KEYTRUDA [Suspect]
     Active Substance: PEMBROLIZUMAB
     Indication: Bronchial carcinoma
     Dosage: 200 MG, Q3W
     Route: 042
     Dates: start: 20200403, end: 20200424
  8. METOCLOPRAMIDE [Suspect]
     Active Substance: METOCLOPRAMIDE
     Indication: Prophylaxis of nausea and vomiting
     Dosage: UNK (INCONNUE)
     Route: 048
     Dates: start: 20200403
  9. OXAZEPAM [Suspect]
     Active Substance: OXAZEPAM
     Indication: Anxiety
     Dosage: UNK (INCONNUE)
     Route: 048
  10. PEGFILGRASTIM [Suspect]
     Active Substance: PEGFILGRASTIM
     Indication: Chemotherapy cytokine prophylaxis
     Dosage: UNK
     Route: 058
     Dates: start: 20200404
  11. PEMETREXED [Suspect]
     Active Substance: PEMETREXED
     Indication: Bronchial carcinoma
     Dosage: UNK (INCONNUE)
     Route: 042
     Dates: start: 20200403, end: 20200414
  12. ALBUTEROL [Suspect]
     Active Substance: ALBUTEROL
     Indication: Chronic obstructive pulmonary disease
     Dosage: UNK (INCONNUE)
     Route: 055
  13. VALPROATE SODIUM [Suspect]
     Active Substance: VALPROATE SODIUM
     Indication: Mental disorder
     Dosage: UNK (INCONNUE)
     Route: 048
  14. ZOLPIDEM [Suspect]
     Active Substance: ZOLPIDEM TARTRATE
     Indication: Insomnia
     Dosage: 10 MG, QD
     Route: 048

REACTIONS (1)
  - Rheumatoid nodule [Recovered/Resolved with Sequelae]

NARRATIVE: CASE EVENT DATE: 20200419
